FAERS Safety Report 15570968 (Version 1)
Quarter: 2018Q4

REPORT INFORMATION
  Report Type: Spontaneous
  Country: IT (occurrence: IT)
  Receive Date: 20181031
  Receipt Date: 20181031
  Transmission Date: 20190205
  Serious: Yes (Other)
  Sender: FDA-Public Use
  Company Number: IT-ALLERGAN-1851120US

PATIENT
  Age: 82 Year
  Sex: Male

DRUGS (14)
  1. CLOPIDOGREL [Concomitant]
     Active Substance: CLOPIDOGREL BISULFATE
  2. BRINTELLIX [Concomitant]
     Active Substance: VORTIOXETINE HYDROBROMIDE
  3. TOUJEO [Concomitant]
     Active Substance: INSULIN GLARGINE
  4. EUTIROX [Concomitant]
     Active Substance: LEVOTHYROXINE SODIUM
  5. HUMALOG [Concomitant]
     Active Substance: INSULIN LISPRO
  6. FOLINA [Concomitant]
     Active Substance: FOLIC ACID
  7. ATORVASTATIN [Concomitant]
     Active Substance: ATORVASTATIN
  8. NEBIVOLOL HCL - BP [Suspect]
     Active Substance: NEBIVOLOL
     Indication: HYPERTENSION
     Dosage: 5 MG, QD
     Route: 048
     Dates: start: 20180101, end: 20180913
  9. MEMANTINE HYDROCHLORIDE. [Concomitant]
     Active Substance: MEMANTINE HYDROCHLORIDE
  10. CARDURA CR [Concomitant]
     Active Substance: DOXAZOSIN MESYLATE
  11. EUTIROX [Concomitant]
     Active Substance: LEVOTHYROXINE SODIUM
  12. LASIX [Suspect]
     Active Substance: FUROSEMIDE
     Indication: HYPERTENSION
     Dosage: 50 MG, BID
     Route: 048
     Dates: start: 20180101
  13. ROCALTROL [Concomitant]
     Active Substance: CALCITRIOL
  14. ADENURIC [Concomitant]
     Active Substance: FEBUXOSTAT

REACTIONS (2)
  - Presyncope [Recovering/Resolving]
  - Bradycardia [Recovering/Resolving]
